FAERS Safety Report 8948221 (Version 1)
Quarter: 2012Q4

REPORT INFORMATION
  Report Type: Spontaneous
  Country: TW (occurrence: None)
  Receive Date: 20121127
  Receipt Date: 20121127
  Transmission Date: 20130627
  Serious: Yes (Other)
  Sender: FDA-Public Use
  Company Number: EUS-2012-00932

PATIENT
  Age: 11 Year
  Sex: Male

DRUGS (1)
  1. ASPARAGINASE [Suspect]
     Indication: ACUTE LYMPHOCYTIC LEUKAEMIA

REACTIONS (4)
  - Pancreatitis acute [None]
  - Ureteric obstruction [None]
  - Hydroureter [None]
  - Hydronephrosis [None]
